FAERS Safety Report 9652833 (Version 1)
Quarter: 2013Q4

REPORT INFORMATION
  Report Type: Spontaneous
  Country: ES (occurrence: ES)
  Receive Date: 20131029
  Receipt Date: 20131029
  Transmission Date: 20140711
  Serious: Yes (Death, Hospitalization, Other)
  Sender: FDA-Public Use
  Company Number: ES-ROXANE LABORATORIES, INC.-2013-RO-01732RO

PATIENT
  Age: 90 Year
  Sex: Female

DRUGS (2)
  1. RISPERIDONE [Suspect]
     Indication: HALLUCINATION, VISUAL
  2. FUROSEMIDE [Suspect]
     Indication: ACUTE PULMONARY OEDEMA
     Route: 042

REACTIONS (3)
  - Death [Fatal]
  - Pemphigoid [Unknown]
  - Sepsis [Unknown]
